FAERS Safety Report 5668699-X (Version None)
Quarter: 2008Q1

REPORT INFORMATION
  Report Type: 
  Country: None (occurrence: None)
  Receive Date: 20080316
  Receipt Date: 20080303
  Transmission Date: 20080703
  Serious: Yes (Hospitalization)
  Sender: FDA-Public Use
  Company Number: FR-JNJFOC-20071201311

PATIENT
  Age: 55 Year
  Sex: Male

DRUGS (9)
  1. REMICADE [Suspect]
     Dosage: 32ND INFUSION
     Route: 042
  2. REMICADE [Suspect]
     Dosage: 31ST INFUSION
     Route: 042
  3. REMICADE [Suspect]
     Indication: ANKYLOSING SPONDYLITIS
     Route: 042
  4. DELURSAN [Concomitant]
  5. ATENOLOL [Concomitant]
  6. KARDEGIC [Concomitant]
  7. LIPANTHYL [Concomitant]
  8. MYOLASTAN [Concomitant]
  9. STILNOX [Concomitant]

REACTIONS (1)
  - BASAL CELL CARCINOMA [None]
